FAERS Safety Report 10717704 (Version 1)
Quarter: 2015Q1

REPORT INFORMATION
  Report Type: Spontaneous
  Country: US (occurrence: US)
  Receive Date: 20150116
  Receipt Date: 20150116
  Transmission Date: 20150721
  Serious: Yes (Death)
  Sender: FDA-Public Use
  Company Number: US-BAYER-2015-005433

PATIENT
  Age: 25 Year
  Sex: Male

DRUGS (2)
  1. ROMILAR [Suspect]
     Active Substance: DEXTROMETHORPHAN HYDROBROMIDE
     Route: 048
  2. CHLORPHENIRAMINE [Suspect]
     Active Substance: CHLORPHENIRAMINE
     Route: 048

REACTIONS (1)
  - Toxicity to various agents [Fatal]
